FAERS Safety Report 17817413 (Version 1)
Quarter: 2020Q2

REPORT INFORMATION
  Report Type: Spontaneous
  Country: AT (occurrence: AT)
  Receive Date: 20200522
  Receipt Date: 20200522
  Transmission Date: 20200714
  Serious: Yes (Other)
  Sender: FDA-Public Use
  Company Number: AT-009507513-2005AUT005103

PATIENT
  Age: 72 Year
  Sex: Female

DRUGS (8)
  1. WOBENZYM [Concomitant]
     Dosage: UNK
  2. JANUVIA [Suspect]
     Active Substance: SITAGLIPTIN PHOSPHATE
     Dosage: 1 DOSAGE FORM, QD (100 MG TABLET ONCE PER DAY)
     Route: 048
     Dates: start: 201911, end: 20200515
  3. JANUVIA [Suspect]
     Active Substance: SITAGLIPTIN PHOSPHATE
     Dosage: DAILY DOSAGE: 50 MG
     Route: 048
     Dates: start: 20200515
  4. MONTELUKAST SODIUM. [Concomitant]
     Active Substance: MONTELUKAST SODIUM
     Indication: ASTHMA
     Dosage: UNK
     Route: 048
  5. DIAMICRON [Concomitant]
     Active Substance: GLICLAZIDE
     Dosage: UNK
  6. EUTHYROX [Concomitant]
     Active Substance: LEVOTHYROXINE SODIUM
     Indication: HYPOTHYROIDISM
     Dosage: UNK
  7. NITROLINGUAL [Concomitant]
     Active Substance: NITROGLYCERIN
     Indication: HYPERTENSION
     Dosage: UNK, PRN (AS NEEDED)
  8. CANDESARTAN. [Concomitant]
     Active Substance: CANDESARTAN
     Indication: HYPERTENSION
     Dosage: UNK

REACTIONS (6)
  - Headache [Unknown]
  - Nephritis [Unknown]
  - Oedema peripheral [Unknown]
  - Weight increased [Unknown]
  - Dry mouth [Unknown]
  - Adverse event [Unknown]

NARRATIVE: CASE EVENT DATE: 202001
